FAERS Safety Report 8018616-2 (Version None)
Quarter: 2012Q1

REPORT INFORMATION
  Report Type: 
  Country: None (occurrence: None)
  Receive Date: 20120103
  Receipt Date: 20111229
  Transmission Date: 20120608
  Serious: Yes (Other)
  Sender: FDA-Public Use
  Company Number: AR-B.I. PHARMACEUTICALS,INC./RIDGEFIELD-2011-RA-00378RA

PATIENT
  Age: 75 Year
  Sex: Male

DRUGS (7)
  1. FLECAINIDA [Concomitant]
     Indication: ATRIAL FIBRILLATION
     Route: 048
  2. AMLODIPINO [Concomitant]
     Indication: HYPERTENSION
     Dosage: 10 MG
     Route: 048
  3. PRADAXA [Suspect]
     Indication: CEREBROVASCULAR ACCIDENT PROPHYLAXIS
     Dosage: 300 MG
     Route: 048
     Dates: start: 20110713
  4. COMBIVENT [Concomitant]
     Indication: CHRONIC OBSTRUCTIVE PULMONARY DISEASE
     Route: 055
  5. IRON [Concomitant]
     Indication: HAEMATOCRIT DECREASED
     Route: 048
  6. BUDESONIDE [Concomitant]
     Indication: CHRONIC OBSTRUCTIVE PULMONARY DISEASE
     Route: 055
  7. LOSACOR D [Concomitant]
     Indication: HYPERTENSION
     Dosage: STRENGHT: 100MG/25MG DAILY DOSE: 100MG/25MG
     Route: 048

REACTIONS (3)
  - HAEMATOCRIT DECREASED [None]
  - BRONCHOSPASM [None]
  - DYSPEPSIA [None]
